FAERS Safety Report 7941860-7 (Version None)
Quarter: 2011Q4

REPORT INFORMATION
  Report Type: 
  Country: None (occurrence: None)
  Receive Date: 20111128
  Receipt Date: 20111118
  Transmission Date: 20120403
  Serious: Yes (Other)
  Sender: FDA-Public Use
  Company Number: US-BAYER-201033470NA

PATIENT
  Age: 20 Year
  Sex: Female
  Weight: 78.005 kg

DRUGS (6)
  1. DROSPIRENONE AND ETHINYL ESTRADIOL [Suspect]
     Indication: ACNE
     Dosage: UNK UNK, UNK
     Route: 065
     Dates: start: 20080601, end: 20080801
  2. YASMIN [Suspect]
     Indication: PREMENSTRUAL SYNDROME
     Dosage: UNK
     Dates: start: 20071001, end: 20071101
  3. ZOLOFT [Concomitant]
     Indication: DEPRESSION
     Dosage: UNK
     Dates: start: 20031201, end: 20050701
  4. DROSPIRENONE AND ETHINYL ESTRADIOL [Suspect]
     Indication: PREMENSTRUAL SYNDROME
     Dosage: UNK
     Dates: start: 20090601, end: 20091001
  5. YASMIN [Suspect]
     Dosage: UNK
     Dates: start: 20080101, end: 20080601
  6. YASMIN [Suspect]
     Indication: ACNE
     Dosage: UNK
     Dates: start: 20070601, end: 20070801

REACTIONS (9)
  - CHOLECYSTITIS CHRONIC [None]
  - DEPRESSION [None]
  - ANXIETY [None]
  - DYSPEPSIA [None]
  - DIARRHOEA [None]
  - SCAR [None]
  - CHOLECYSTECTOMY [None]
  - CONSTIPATION [None]
  - ABDOMINAL DISTENSION [None]
